FAERS Safety Report 8428880-3 (Version None)
Quarter: 2012Q2

REPORT INFORMATION
  Report Type: 
  Country: None (occurrence: None)
  Receive Date: 20120605
  Receipt Date: 20120521
  Transmission Date: 20120825
  Serious: Yes (Hospitalization)
  Sender: FDA-Public Use
  Company Number: 2012-001349

PATIENT
  Age: 62 Year
  Sex: Female
  Weight: 72.6 kg

DRUGS (6)
  1. PRILOSEC [Concomitant]
  2. FISH OIL (FISH OIL) [Concomitant]
  3. VITAMIN D (COLECALCIFEROL) [Concomitant]
  4. ATELVIA [Suspect]
     Indication: OSTEOPOROSIS
     Dosage: 35 MG ONCE WEEKLY, ORAL
     Route: 048
     Dates: start: 20120126, end: 20120210
  5. CITRACAL (CALCIUM CITRATE) [Concomitant]
  6. ASPIRIN [Concomitant]

REACTIONS (17)
  - MUSCULOSKELETAL PAIN [None]
  - INTERVERTEBRAL DISC DEGENERATION [None]
  - BURSITIS [None]
  - JOINT SWELLING [None]
  - BLOOD POTASSIUM DECREASED [None]
  - BACK PAIN [None]
  - ARTHRALGIA [None]
  - ASTHENIA [None]
  - JOINT EFFUSION [None]
  - ALANINE AMINOTRANSFERASE INCREASED [None]
  - NON-CARDIAC CHEST PAIN [None]
  - NECK PAIN [None]
  - JOINT RANGE OF MOTION DECREASED [None]
  - PALPITATIONS [None]
  - PAIN IN EXTREMITY [None]
  - LIVER DISORDER [None]
  - BLOOD CALCIUM DECREASED [None]
